FAERS Safety Report 19104264 (Version 2)
Quarter: 2021Q4

REPORT INFORMATION
  Report Type: Spontaneous
  Country: US (occurrence: None)
  Receive Date: 20210407
  Receipt Date: 20211213
  Transmission Date: 20220303
  Serious: Yes (Death, Hospitalization, Other)
  Sender: FDA-Public Use
  Company Number: 2021A264645

PATIENT
  Age: 64 Year
  Sex: Male
  Weight: 58.1 kg

DRUGS (48)
  1. NEXIUM 24HR [Suspect]
     Active Substance: ESOMEPRAZOLE MAGNESIUM
     Indication: Gastrooesophageal reflux disease
     Route: 048
     Dates: start: 2015, end: 2017
  2. NEXIUM [Suspect]
     Active Substance: ESOMEPRAZOLE MAGNESIUM
     Indication: Gastrooesophageal reflux disease
     Route: 048
     Dates: start: 2015, end: 2017
  3. NEXIUM [Suspect]
     Active Substance: ESOMEPRAZOLE MAGNESIUM
     Indication: Gastrooesophageal reflux disease
     Dosage: GENERIC
     Route: 065
     Dates: start: 2015, end: 2018
  4. PRILOSEC [Suspect]
     Active Substance: OMEPRAZOLE MAGNESIUM
     Indication: Gastrooesophageal reflux disease
     Route: 048
     Dates: start: 2015, end: 2017
  5. PRILOSEC [Suspect]
     Active Substance: OMEPRAZOLE MAGNESIUM
     Indication: Gastrooesophageal reflux disease
     Dosage: GENERIC
     Route: 065
     Dates: start: 2016, end: 2018
  6. PRILOSEC OTC [Suspect]
     Active Substance: OMEPRAZOLE MAGNESIUM
     Indication: Gastrooesophageal reflux disease
     Route: 048
     Dates: start: 2016, end: 2018
  7. LANSOPRAZOLE [Suspect]
     Active Substance: LANSOPRAZOLE
     Indication: Gastrooesophageal reflux disease
     Dosage: GENERIC
     Route: 065
  8. PREVACID 24 HR [Suspect]
     Active Substance: LANSOPRAZOLE
     Indication: Gastrooesophageal reflux disease
     Route: 065
     Dates: start: 2015, end: 2016
  9. PRAVASTATIN [Concomitant]
     Active Substance: PRAVASTATIN
     Indication: Blood cholesterol increased
  10. ATORVASTATIN [Concomitant]
     Active Substance: ATORVASTATIN
     Indication: Blood cholesterol increased
  11. CLOPIDOGREL [Concomitant]
     Active Substance: CLOPIDOGREL BISULFATE
     Indication: Blood viscosity abnormal
  12. PLAVIX [Concomitant]
     Active Substance: CLOPIDOGREL BISULFATE
     Indication: Blood viscosity abnormal
  13. ASPIRIN [Concomitant]
     Active Substance: ASPIRIN
     Indication: Blood viscosity abnormal
  14. VITAMIN B12 [Concomitant]
     Active Substance: CYANOCOBALAMIN
     Indication: Vitamin B12 deficiency
  15. FAMOTIDINE [Concomitant]
     Active Substance: FAMOTIDINE
  16. TUMS [Concomitant]
     Active Substance: CALCIUM CARBONATE
  17. PEPTO-BISMOL [Concomitant]
     Active Substance: BISMUTH SUBSALICYLATE
  18. BALSALAZIDE [Concomitant]
     Active Substance: BALSALAZIDE
  19. METOPROLOL [Concomitant]
     Active Substance: METOPROLOL
  20. METHOCARBAMOL [Concomitant]
     Active Substance: METHOCARBAMOL
  21. DOCUSATE SODIUM [Concomitant]
     Active Substance: DOCUSATE SODIUM
  22. EZETIMIBE [Concomitant]
     Active Substance: EZETIMIBE
  23. AMLODIPINE [Concomitant]
     Active Substance: AMLODIPINE BESYLATE
  24. DONEPEZIL [Concomitant]
     Active Substance: DONEPEZIL
  25. OXYCODONE [Concomitant]
     Active Substance: OXYCODONE
  26. LOVENOX [Concomitant]
     Active Substance: ENOXAPARIN SODIUM
  27. DILAUDID [Concomitant]
     Active Substance: HYDROMORPHONE HYDROCHLORIDE
  28. TRAMADOL [Concomitant]
     Active Substance: TRAMADOL
  29. OXALIPLATIN [Concomitant]
     Active Substance: OXALIPLATIN
  30. DULCOLAX NOS [Concomitant]
     Active Substance: BISACODYL OR DOCUSATE SODIUM
  31. KETOROLAC [Concomitant]
     Active Substance: KETOROLAC TROMETHAMINE
  32. FENTANYL [Concomitant]
     Active Substance: FENTANYL
  33. DEXTROSE [Concomitant]
     Active Substance: DEXTROSE
  34. ONDANSETRON [Concomitant]
     Active Substance: ONDANSETRON
  35. POTASSIUM CHLORIDE [Concomitant]
     Active Substance: POTASSIUM CHLORIDE
  36. HEPARIN [Concomitant]
     Active Substance: HEPARIN SODIUM
  37. SODIUM CHLORIDE [Concomitant]
     Active Substance: SODIUM CHLORIDE
  38. DEXAMETHASONE SODIUM PHOSPHATE [Concomitant]
     Active Substance: DEXAMETHASONE SODIUM PHOSPHATE
  39. DIPHENHYDRAMINE [Concomitant]
     Active Substance: DIPHENHYDRAMINE
  40. DOCETAXEL [Concomitant]
     Active Substance: DOCETAXEL
  41. LEUCOVORIN [Concomitant]
     Active Substance: LEUCOVORIN
  42. FLUOROURACIL [Concomitant]
     Active Substance: FLUOROURACIL
  43. LIDOCAINE [Concomitant]
     Active Substance: LIDOCAINE
  44. PROPOFOL [Concomitant]
     Active Substance: PROPOFOL
  45. MIDAZOLAM [Concomitant]
     Active Substance: MIDAZOLAM
  46. CEFAZOLIN [Concomitant]
     Active Substance: CEFAZOLIN
  47. KETAMINE [Concomitant]
     Active Substance: KETAMINE
  48. LABETALOL [Concomitant]
     Active Substance: LABETALOL\LABETALOL HYDROCHLORIDE

REACTIONS (7)
  - Arteriosclerosis [Fatal]
  - Hypertension [Fatal]
  - Hyperlipidaemia [Fatal]
  - Metastatic gastric cancer [Unknown]
  - Pancreatic carcinoma [Unknown]
  - Hepatic cancer [Unknown]
  - Rebound acid hypersecretion [Unknown]

NARRATIVE: CASE EVENT DATE: 20150101
